FAERS Safety Report 4587996-2 (Version None)
Quarter: 2005Q1

REPORT INFORMATION
  Report Type: 
  Country: None (occurrence: None)
  Receive Date: 20050215
  Receipt Date: 20050202
  Transmission Date: 20050727
  Serious: Yes (Disabling)
  Sender: FDA-Public Use
  Company Number: HQWYE083103FEB05

PATIENT
  Age: 32 Year
  Sex: Male
  Weight: 84.9 kg

DRUGS (7)
  1. EFFEXOR XR [Suspect]
     Indication: DEPRESSION
     Dosage: SEE IMAGE
     Route: 048
     Dates: start: 20031201, end: 20040401
  2. EFFEXOR XR [Suspect]
     Indication: DEPRESSION
     Dosage: SEE IMAGE
     Route: 048
     Dates: start: 20040401, end: 20040601
  3. STRATTERA [Concomitant]
  4. LEXAPRO [Concomitant]
  5. WELLBUTRIN [Concomitant]
  6. SEROQUEL [Concomitant]
  7. PAXIL [Concomitant]

REACTIONS (10)
  - ANXIETY [None]
  - DISTURBANCE IN ATTENTION [None]
  - DRUG INEFFECTIVE [None]
  - DRUG WITHDRAWAL SYNDROME [None]
  - DYSPHEMIA [None]
  - HYPOAESTHESIA [None]
  - IMPAIRED WORK ABILITY [None]
  - SOCIAL PHOBIA [None]
  - THINKING ABNORMAL [None]
  - TREMOR [None]
